FAERS Safety Report 7465136-X (Version None)
Quarter: 2011Q2

REPORT INFORMATION
  Report Type: 
  Country: None (occurrence: None)
  Receive Date: 20110509
  Receipt Date: 20110502
  Transmission Date: 20111010
  Serious: Yes (Hospitalization)
  Sender: FDA-Public Use
  Company Number: TR-PFIZER INC-2011094376

PATIENT
  Sex: Male
  Weight: 87 kg

DRUGS (3)
  1. CELL CEPT [Concomitant]
     Dosage: 1000+1000
     Dates: start: 20110225
  2. PROGRAF [Concomitant]
     Dosage: 7+6
     Dates: start: 20110225, end: 20110328
  3. RAPAMUNE [Suspect]
     Dosage: 3 MG, 1X/DAY
     Route: 048
     Dates: start: 20110329, end: 20110418

REACTIONS (1)
  - RENAL TUBULAR NECROSIS [None]
